FAERS Safety Report 21692745 (Version 2)
Quarter: 2022Q4

REPORT INFORMATION
  Report Type: Spontaneous
  Country: ES (occurrence: ES)
  Receive Date: 20221207
  Receipt Date: 20221227
  Transmission Date: 20230112
  Serious: Yes (Hospitalization, Other)
  Sender: FDA-Public Use
  Company Number: ES-ALKEM LABORATORIES LIMITED-ES-ALKEM-2022-13684

PATIENT
  Age: 51 Year
  Sex: Male

DRUGS (4)
  1. OLANZAPINE [Suspect]
     Active Substance: OLANZAPINE
     Indication: Schizophrenia
     Dosage: 20 MILLIGRAM, QD
     Route: 065
  2. OLANZAPINE [Suspect]
     Active Substance: OLANZAPINE
     Dosage: 405 MILLIGRAM/4 WEEKS
     Route: 065
     Dates: start: 200501
  3. OLANZAPINE [Suspect]
     Active Substance: OLANZAPINE
     Dosage: 270 MG/4 WEEKS
     Route: 065
     Dates: start: 200702
  4. OLANZAPINE [Suspect]
     Active Substance: OLANZAPINE
     Dosage: 270 MILLIGRAM
     Route: 030
     Dates: start: 20111110

REACTIONS (1)
  - Post-injection delirium sedation syndrome [Recovered/Resolved]
